FAERS Safety Report 9343533 (Version 1)
Quarter: 2013Q2

REPORT INFORMATION
  Report Type: Spontaneous
  Country: US (occurrence: US)
  Receive Date: 20130612
  Receipt Date: 20130612
  Transmission Date: 20140414
  Serious: No
  Sender: FDA-Public Use
  Company Number: US-BIOGENIDEC-2013BI052486

PATIENT
  Sex: Male

DRUGS (1)
  1. TYSABRI [Suspect]
     Indication: MULTIPLE SCLEROSIS
     Route: 042
     Dates: start: 20121018

REACTIONS (6)
  - Central nervous system lesion [Unknown]
  - Dysarthria [Unknown]
  - Dysphemia [Recovered/Resolved]
  - Mobility decreased [Unknown]
  - Gait disturbance [Unknown]
  - Multiple sclerosis relapse [Unknown]
